FAERS Safety Report 10867078 (Version 1)
Quarter: 2015Q1

REPORT INFORMATION
  Report Type: Spontaneous
  Country: US (occurrence: US)
  Receive Date: 20150225
  Receipt Date: 20150225
  Transmission Date: 20150721
  Serious: Yes (Other)
  Sender: FDA-Public Use
  Company Number: US-JNJFOC-20150215745

PATIENT

DRUGS (2)
  1. REMICADE [Suspect]
     Active Substance: INFLIXIMAB
     Indication: PRODUCT USED FOR UNKNOWN INDICATION
     Route: 042
  2. HUMIRA [Suspect]
     Active Substance: ADALIMUMAB
     Indication: PRODUCT USED FOR UNKNOWN INDICATION
     Route: 065

REACTIONS (7)
  - Gastrointestinal disorder [Recovering/Resolving]
  - Rectal haemorrhage [Recovering/Resolving]
  - Mouth ulceration [Unknown]
  - Mouth swelling [Unknown]
  - Therapeutic response unexpected [Unknown]
  - Lip swelling [Unknown]
  - Drug effect decreased [Unknown]
